FAERS Safety Report 23729499 (Version 1)
Quarter: 2024Q2

REPORT INFORMATION
  Report Type: Spontaneous
  Country: PL (occurrence: PL)
  Receive Date: 20240410
  Receipt Date: 20240410
  Transmission Date: 20240716
  Serious: Yes (Other)
  Sender: FDA-Public Use
  Company Number: None

PATIENT
  Age: 33 Year
  Sex: Male
  Weight: 68 kg

DRUGS (2)
  1. LEVOFLOXACIN [Suspect]
     Active Substance: LEVOFLOXACIN
     Indication: Product used for unknown indication
     Dosage: DOSE: 1 UNIT UNKNOWN
     Route: 048
     Dates: start: 20190707
  2. METHYLPREDNISOLONE [Suspect]
     Active Substance: METHYLPREDNISOLONE
     Indication: Product used for unknown indication
     Dosage: THE DOSES WERE REDUCED EACH SUBSEQUENT DAY - THREE TIMES A DAY - ONE TABLET, THEN TWICE A DAY- ON...
     Route: 048
     Dates: start: 20190710

REACTIONS (6)
  - Myalgia [Recovering/Resolving]
  - Weight decreased [Recovering/Resolving]
  - Arthralgia [Recovering/Resolving]
  - Insomnia [Recovering/Resolving]
  - Chondromalacia [Recovering/Resolving]
  - Neuralgia [Recovering/Resolving]
